FAERS Safety Report 8301479-5 (Version None)
Quarter: 2012Q2

REPORT INFORMATION
  Report Type: 
  Country: None (occurrence: None)
  Receive Date: 20120420
  Receipt Date: 20120416
  Transmission Date: 20120825
  Serious: Yes (Hospitalization)
  Sender: FDA-Public Use
  Company Number: PHHY2012DE018824

PATIENT
  Sex: Female
  Weight: 52 kg

DRUGS (5)
  1. INSUMAN BASAL [Concomitant]
     Indication: DIABETES MELLITUS
     Dosage: 10-0-8 I.E. QD
     Dates: start: 20031201
  2. NITRENDIPIN [Concomitant]
     Indication: HYPERTENSION
     Dosage: UKN, PRN
     Route: 048
     Dates: start: 20070101
  3. RASILEZ [Suspect]
     Indication: HYPERTENSION
     Dosage: 150 MG, PER DAY
     Dates: start: 20100801, end: 20120113
  4. DIOVAN HCT [Suspect]
     Indication: HYPERTENSION
     Dosage: 160/ 12.5  MG DAILY
     Route: 048
     Dates: start: 20050601
  5. ACTRAPID [Concomitant]
     Indication: DIABETES MELLITUS
     Dosage: 3-3-3 I.E. QD
     Dates: start: 19950901

REACTIONS (1)
  - LACUNAR INFARCTION [None]
